FAERS Safety Report 6845978-1 (Version None)
Quarter: 2010Q3

REPORT INFORMATION
  Report Type: 
  Country: None (occurrence: None)
  Receive Date: 20100715
  Receipt Date: 20070830
  Transmission Date: 20110219
  Serious: No
  Sender: FDA-Public Use
  Company Number: US-PFIZER INC-2007073933

PATIENT
  Sex: Female
  Weight: 64.9 kg

DRUGS (3)
  1. CHANTIX [Suspect]
     Indication: SMOKING CESSATION THERAPY
     Dates: start: 20070801
  2. AMBIEN [Concomitant]
  3. ANTIDEPRESSANTS [Concomitant]

REACTIONS (7)
  - ABDOMINAL DISCOMFORT [None]
  - FATIGUE [None]
  - GAIT DISTURBANCE [None]
  - MIDDLE INSOMNIA [None]
  - SEDATION [None]
  - SENSATION OF HEAVINESS [None]
  - SINUS HEADACHE [None]
